FAERS Safety Report 7628750-4 (Version None)
Quarter: 2011Q3

REPORT INFORMATION
  Report Type: 
  Country: None (occurrence: None)
  Receive Date: 20110722
  Receipt Date: 20110706
  Transmission Date: 20111222
  Serious: Yes (Other)
  Sender: FDA-Public Use
  Company Number: US-BAYER-2011-044842

PATIENT
  Age: 29 Year
  Sex: Female
  Weight: 77.098 kg

DRUGS (5)
  1. KLONOPIN [Concomitant]
     Indication: ANXIETY
     Dosage: UNK
     Route: 048
     Dates: start: 20050701
  2. LORAZEPAM [Concomitant]
     Indication: ANXIETY
     Dosage: 0.5 MG, UNK
     Route: 048
  3. YASMIN [Suspect]
     Indication: CONTRACEPTION
     Dosage: UNK
     Dates: start: 20070204, end: 20100816
  4. ZOLOFT [Concomitant]
     Indication: ANXIETY
     Dosage: 100 MG, UNK
     Route: 048
     Dates: start: 20040101
  5. FLONASE [Concomitant]
     Indication: MULTIPLE ALLERGIES
     Dosage: 50 ?G, BID
     Route: 045
     Dates: start: 20050701

REACTIONS (6)
  - GALLBLADDER CHOLESTEROLOSIS [None]
  - EMOTIONAL DISTRESS [None]
  - CHOLELITHIASIS [None]
  - CHOLECYSTITIS [None]
  - GALLBLADDER DISORDER [None]
  - INJURY [None]
